FAERS Safety Report 8576942-2 (Version None)
Quarter: 2012Q3

REPORT INFORMATION
  Report Type: 
  Country: None (occurrence: None)
  Receive Date: 20120807
  Receipt Date: 20120802
  Transmission Date: 20120928
  Serious: Yes (Hospitalization, Other)
  Sender: FDA-Public Use
  Company Number: PHHY2012AU009826

PATIENT
  Sex: Male

DRUGS (6)
  1. DIAZEPAM [Concomitant]
     Dosage: 10 MG, AT NIGHT
     Route: 048
     Dates: start: 20120203, end: 20120228
  2. PALIPERIDONE [Concomitant]
     Indication: SCHIZOPHRENIA
     Dosage: 100 MG, ONCE EVERY FOUR WEEK
     Dates: start: 20111128
  3. BENZTROPINE MESYLATE [Concomitant]
     Dosage: 1 MG, AT MORNING
     Route: 048
     Dates: start: 20120203
  4. CLOZARIL [Suspect]
     Indication: SCHIZOPHRENIA
     Dosage: 150 MG, UNK
     Route: 048
     Dates: start: 20120116, end: 20120131
  5. METFORMIN HYDROCHLORIDE [Concomitant]
     Indication: TYPE 2 DIABETES MELLITUS
     Dosage: 500 MG, AT NIGHT
     Route: 048
  6. VENLAFAXINE [Concomitant]
     Indication: DEPRESSION
     Dosage: 375  MG, QD AT NIGHT
     Route: 048

REACTIONS (15)
  - BODY TEMPERATURE INCREASED [None]
  - TROPONIN INCREASED [None]
  - EJECTION FRACTION DECREASED [None]
  - NEUTROPHIL COUNT INCREASED [None]
  - OEDEMA PERIPHERAL [None]
  - MYOCARDITIS [None]
  - HYPOTENSION [None]
  - ABDOMINAL DISCOMFORT [None]
  - WHITE BLOOD CELL COUNT INCREASED [None]
  - OXYGEN SATURATION DECREASED [None]
  - TACHYCARDIA [None]
  - DYSPNOEA [None]
  - ELECTROCARDIOGRAM ST SEGMENT ELEVATION [None]
  - MONOCYTOSIS [None]
  - ANTIPSYCHOTIC DRUG LEVEL ABOVE THERAPEUTIC [None]
